FAERS Safety Report 5977764-9 (Version None)
Quarter: 2008Q4

REPORT INFORMATION
  Report Type: 
  Country: None (occurrence: None)
  Receive Date: 20081202
  Receipt Date: 20081202
  Transmission Date: 20090506
  Serious: Yes (Other)
  Sender: FDA-Public Use
  Company Number: None

PATIENT
  Age: 85 Year
  Sex: Female
  Weight: 47 kg

DRUGS (13)
  1. TRANEXAMIC ACID  CYKLOKAPRON PFIZER [Suspect]
     Indication: PROCOAGULANT THERAPY
     Dosage: 2 G IV X1 IV BOLUS
     Route: 040
     Dates: start: 20081110, end: 20081110
  2. TRANEXAMIC ACID CYKLOLAPRON PFIZER [Suspect]
     Dosage: 400MG/HR IV INTRACEP IV DRIP
     Route: 041
  3. ISOFLURANE [Concomitant]
  4. FENTANYL-100 [Concomitant]
  5. LIDOCAINE [Concomitant]
  6. ETOMIDATE [Concomitant]
  7. VECURONIUM CACL [Concomitant]
  8. INSULIN [Concomitant]
  9. HEPARIN [Concomitant]
  10. PROTAMINE SULFATE [Concomitant]
  11. METOCLOPRAMIDE [Concomitant]
  12. FAMOTIDE [Concomitant]
  13. VANCOMYCIN [Concomitant]

REACTIONS (1)
  - ENCEPHALOPATHY [None]
